FAERS Safety Report 7564702-0 (Version None)
Quarter: 2011Q2

REPORT INFORMATION
  Report Type: 
  Country: None (occurrence: None)
  Receive Date: 20110622
  Receipt Date: 20101110
  Transmission Date: 20111010
  Serious: Yes (Other)
  Sender: FDA-Public Use
  Company Number: US-MYLANLABS-2010S1016891

PATIENT
  Age: 44 Year
  Sex: Male

DRUGS (9)
  1. CLONAZEPAM [Concomitant]
  2. ABILIFY [Concomitant]
  3. LITHIUM [Concomitant]
     Dosage: USING 150MG TABLET
  4. CLOZAPINE [Suspect]
     Dates: end: 20100910
  5. CLOZAPINE [Suspect]
     Dates: start: 20101112
  6. TEMAZEPAM [Concomitant]
  7. CARBAMAZEPINE [Concomitant]
  8. SEROQUEL [Concomitant]
  9. ZYPREXA [Concomitant]

REACTIONS (2)
  - LEUKOPENIA [None]
  - GRANULOCYTOPENIA [None]
